FAERS Safety Report 4775711-9 (Version None)
Quarter: 2005Q3

REPORT INFORMATION
  Report Type: 
  Country: None (occurrence: None)
  Receive Date: 20050922
  Receipt Date: 20050908
  Transmission Date: 20060218
  Serious: Yes (Other)
  Sender: FDA-Public Use
  Company Number: PHBS2005BR13217

PATIENT
  Age: 46 Year
  Sex: Female
  Weight: 59 kg

DRUGS (3)
  1. ZELMAC [Suspect]
     Indication: CONSTIPATION
     Dosage: 6 MG, QD
     Route: 048
     Dates: start: 20050808
  2. ZELMAC [Suspect]
     Dosage: 12 MG, QD
     Route: 048
     Dates: start: 20050801, end: 20050830
  3. ZELMAC [Suspect]
     Dosage: 6 MG, QD
     Route: 048
     Dates: start: 20050901, end: 20050909

REACTIONS (10)
  - DIZZINESS [None]
  - DRY MOUTH [None]
  - ERYTHEMA [None]
  - FACE OEDEMA [None]
  - HYPOTENSION [None]
  - PARAESTHESIA [None]
  - STOMACH DISCOMFORT [None]
  - TACHYCARDIA [None]
  - TREMOR [None]
  - VERTIGO [None]
